FAERS Safety Report 8887258 (Version 2)
Quarter: 2012Q4

REPORT INFORMATION
  Report Type: 
  Country: CA (occurrence: CA)
  Receive Date: 20121105
  Receipt Date: 20121129
  Transmission Date: 20130627
  Serious: Yes (Hospitalization)
  Sender: FDA-Public Use
  Company Number: PHHY2012CA100866

PATIENT
  Sex: Female

DRUGS (3)
  1. ACLASTA [Suspect]
     Indication: OSTEOPOROSIS
     Route: 042
     Dates: start: 20091117
  2. ACLASTA [Suspect]
     Dosage: UNK
     Route: 042
     Dates: start: 20101115
  3. ACLASTA [Suspect]
     Dosage: UNK
     Route: 042
     Dates: start: 20111107

REACTIONS (1)
  - Hip fracture [Unknown]
